FAERS Safety Report 9721800 (Version 1)
Quarter: 2013Q4

REPORT INFORMATION
  Report Type: Spontaneous
  Country: US (occurrence: US)
  Receive Date: 20131201
  Receipt Date: 20131201
  Transmission Date: 20140711
  Serious: No
  Sender: FDA-Public Use
  Company Number: US-ABBVIE-13P-163-1157843-00

PATIENT
  Age: 60 Year
  Sex: Male
  Weight: 83.54 kg

DRUGS (4)
  1. ANDROGEL [Suspect]
     Indication: BLOOD TESTOSTERONE DECREASED
     Dates: start: 201309
  2. ANDROGEL [Suspect]
     Dates: start: 201309, end: 201310
  3. ANDROGEL [Suspect]
     Dates: start: 201310
  4. LISINOPRIL [Concomitant]
     Indication: HYPERTENSION

REACTIONS (1)
  - Muscle spasms [Not Recovered/Not Resolved]
